FAERS Safety Report 6979640-1 (Version None)
Quarter: 2010Q3

REPORT INFORMATION
  Report Type: 
  Country: None (occurrence: None)
  Receive Date: 20100910
  Receipt Date: 20100910
  Transmission Date: 20110219
  Serious: Yes (Hospitalization)
  Sender: FDA-Public Use
  Company Number: None

PATIENT
  Age: 29 Year
  Sex: Female
  Weight: 119 kg

DRUGS (2)
  1. LOVENOX [Suspect]
     Indication: THROMBOSIS PROPHYLAXIS
     Dosage: 40MG 1 TIME SQ
     Route: 058
     Dates: start: 20090915, end: 20090915
  2. VITAMIN AND MINERAL PRENATAL SUPPLEMENT W/ FOLIC ACID CAP [Concomitant]

REACTIONS (5)
  - ANAEMIA [None]
  - ANASTOMOTIC LEAK [None]
  - INTRA-ABDOMINAL HAEMATOMA [None]
  - POST PROCEDURAL HAEMATOMA [None]
  - URINE OUTPUT DECREASED [None]
